FAERS Safety Report 4774368-0 (Version None)
Quarter: 2005Q3

REPORT INFORMATION
  Report Type: 
  Country: None (occurrence: None)
  Receive Date: 20050914
  Receipt Date: 20041129
  Transmission Date: 20060218
  Serious: Yes (Death)
  Sender: FDA-Public Use
  Company Number: 163-20785-04120029

PATIENT
  Age: 69 Year
  Sex: Male

DRUGS (1)
  1. THALOMID [Suspect]
     Indication: NON-HODGKIN'S LYMPHOMA STAGE IV
     Dosage: 50 MG, QD, ORAL;  FEW DOSES
     Route: 048

REACTIONS (1)
  - DEATH [None]
